FAERS Safety Report 9352655 (Version 2)
Quarter: 2013Q3

REPORT INFORMATION
  Report Type: Spontaneous
  Country: AU (occurrence: AU)
  Receive Date: 20130618
  Receipt Date: 20130717
  Transmission Date: 20140515
  Serious: Yes (Other)
  Sender: FDA-Public Use
  Company Number: AU-009507513-1306AUS006044

PATIENT
  Age: 29 Year
  Sex: Female
  Weight: 133 kg

DRUGS (1)
  1. SAPHRIS [Suspect]
     Indication: BIPOLAR DISORDER
     Dosage: 15 MG, UNK
     Route: 048
     Dates: start: 20130606, end: 20130612

REACTIONS (3)
  - Generalised oedema [Unknown]
  - Orthopnoea [Unknown]
  - Hypoaesthesia [Unknown]
